FAERS Safety Report 6559893-4 (Version None)
Quarter: 2010Q1

REPORT INFORMATION
  Report Type: 
  Country: None (occurrence: None)
  Receive Date: 20100129
  Receipt Date: 20090914
  Transmission Date: 20100710
  Serious: No
  Sender: FDA-Public Use
  Company Number: US-ABBOTT-09P-163-0597221-00

PATIENT
  Sex: Female
  Weight: 75.364 kg

DRUGS (17)
  1. HUMIRA [Suspect]
     Indication: ANKYLOSING SPONDYLITIS
     Route: 058
     Dates: start: 20080101
  2. HUMIRA [Suspect]
     Indication: OSTEOARTHRITIS
  3. STEROID INJECTION [Suspect]
     Indication: NECK PAIN
     Dates: start: 20090701, end: 20090801
  4. STEROID INJECTION [Suspect]
     Indication: PROPHYLAXIS
  5. NITROFURANTOIN [Concomitant]
     Indication: PROPHYLAXIS
     Dosage: DAILY
     Route: 065
     Dates: start: 20080101
  6. NITROFURANTOIN [Concomitant]
     Indication: CYSTITIS
  7. SEREVENT [Concomitant]
     Indication: ASTHMA
     Dosage: DAILY
  8. ALBUTEROL [Concomitant]
     Indication: ASTHMA
  9. PROVENTOL [Concomitant]
     Indication: ASTHMA
     Dosage: RESCUE INHALER
  10. VERAPAMIL [Concomitant]
     Indication: HYPERTENSION
     Dosage: DAILY
  11. DIOVAN [Concomitant]
     Indication: HYPERTENSION
     Dosage: DAILY
  12. LEVOTHYROXINE SODIUM [Concomitant]
     Indication: HYPOTHYROIDISM
     Dosage: DAILY
  13. MECLIZINE [Concomitant]
     Indication: MENIERE'S DISEASE
     Dosage: UNKNOWN
  14. PHENERGAN HCL [Concomitant]
     Indication: MENIERE'S DISEASE
     Route: 065
  15. PHENERGAN HCL [Concomitant]
     Indication: NAUSEA
  16. IMITREX [Concomitant]
     Indication: MIGRAINE
     Dosage: UNKNOWN
  17. VITAMINS [Concomitant]
     Indication: VITAMIN SUPPLEMENTATION
     Dosage: UNKNOWN

REACTIONS (3)
  - BRONCHITIS [None]
  - DYSURIA [None]
  - PYREXIA [None]
